FAERS Safety Report 25860376 (Version 1)
Quarter: 2025Q3

REPORT INFORMATION
  Report Type: Spontaneous
  Country: CA (occurrence: CA)
  Receive Date: 20250929
  Receipt Date: 20250929
  Transmission Date: 20251021
  Serious: Yes (Death, Hospitalization)
  Sender: MYLAN
  Company Number: CA-MYLANLABS-2024M1078006

PATIENT
  Age: 26 Year
  Sex: Male

DRUGS (48)
  1. VALPROIC ACID [Suspect]
     Active Substance: VALPROIC ACID
     Indication: Product used for unknown indication
  2. VALPROIC ACID [Suspect]
     Active Substance: VALPROIC ACID
     Route: 065
  3. VALPROIC ACID [Suspect]
     Active Substance: VALPROIC ACID
     Route: 065
  4. VALPROIC ACID [Suspect]
     Active Substance: VALPROIC ACID
  5. BISOPROLOL [Suspect]
     Active Substance: BISOPROLOL
     Indication: Product used for unknown indication
  6. BISOPROLOL [Suspect]
     Active Substance: BISOPROLOL
     Route: 065
  7. BISOPROLOL [Suspect]
     Active Substance: BISOPROLOL
     Route: 065
  8. BISOPROLOL [Suspect]
     Active Substance: BISOPROLOL
  9. CANNABIS SATIVA SUBSP. INDICA TOP [Suspect]
     Active Substance: CANNABIS SATIVA SUBSP. INDICA TOP
     Indication: Product used for unknown indication
  10. CANNABIS SATIVA SUBSP. INDICA TOP [Suspect]
     Active Substance: CANNABIS SATIVA SUBSP. INDICA TOP
     Route: 065
  11. CANNABIS SATIVA SUBSP. INDICA TOP [Suspect]
     Active Substance: CANNABIS SATIVA SUBSP. INDICA TOP
     Route: 065
  12. CANNABIS SATIVA SUBSP. INDICA TOP [Suspect]
     Active Substance: CANNABIS SATIVA SUBSP. INDICA TOP
  13. DIPHENHYDRAMINE [Suspect]
     Active Substance: DIPHENHYDRAMINE
     Indication: Product used for unknown indication
  14. DIPHENHYDRAMINE [Suspect]
     Active Substance: DIPHENHYDRAMINE
     Route: 065
  15. DIPHENHYDRAMINE [Suspect]
     Active Substance: DIPHENHYDRAMINE
     Route: 065
  16. DIPHENHYDRAMINE [Suspect]
     Active Substance: DIPHENHYDRAMINE
  17. DIPHENHYDRAMINE HYDROCHLORIDE [Suspect]
     Active Substance: DIPHENHYDRAMINE HYDROCHLORIDE
     Indication: Product used for unknown indication
  18. DIPHENHYDRAMINE HYDROCHLORIDE [Suspect]
     Active Substance: DIPHENHYDRAMINE HYDROCHLORIDE
     Route: 065
  19. DIPHENHYDRAMINE HYDROCHLORIDE [Suspect]
     Active Substance: DIPHENHYDRAMINE HYDROCHLORIDE
     Route: 065
  20. DIPHENHYDRAMINE HYDROCHLORIDE [Suspect]
     Active Substance: DIPHENHYDRAMINE HYDROCHLORIDE
  21. ETIZOLAM [Suspect]
     Active Substance: ETIZOLAM
     Indication: Product used for unknown indication
  22. ETIZOLAM [Suspect]
     Active Substance: ETIZOLAM
     Route: 065
  23. ETIZOLAM [Suspect]
     Active Substance: ETIZOLAM
     Route: 065
  24. ETIZOLAM [Suspect]
     Active Substance: ETIZOLAM
  25. FENTANYL [Suspect]
     Active Substance: FENTANYL
     Indication: Product used for unknown indication
  26. FENTANYL [Suspect]
     Active Substance: FENTANYL
     Route: 065
  27. FENTANYL [Suspect]
     Active Substance: FENTANYL
     Route: 065
  28. FENTANYL [Suspect]
     Active Substance: FENTANYL
  29. VALPROATE SODIUM [Suspect]
     Active Substance: VALPROATE SODIUM
     Indication: Product used for unknown indication
  30. VALPROATE SODIUM [Suspect]
     Active Substance: VALPROATE SODIUM
     Route: 065
  31. VALPROATE SODIUM [Suspect]
     Active Substance: VALPROATE SODIUM
     Route: 065
  32. VALPROATE SODIUM [Suspect]
     Active Substance: VALPROATE SODIUM
  33. NALOXONE [Suspect]
     Active Substance: NALOXONE
     Indication: Product used for unknown indication
  34. NALOXONE [Suspect]
     Active Substance: NALOXONE
     Route: 065
  35. NALOXONE [Suspect]
     Active Substance: NALOXONE
     Route: 065
  36. NALOXONE [Suspect]
     Active Substance: NALOXONE
  37. BISOPROLOL [Concomitant]
     Active Substance: BISOPROLOL
     Indication: Product used for unknown indication
  38. BISOPROLOL [Concomitant]
     Active Substance: BISOPROLOL
     Route: 065
  39. BISOPROLOL [Concomitant]
     Active Substance: BISOPROLOL
     Route: 065
  40. BISOPROLOL [Concomitant]
     Active Substance: BISOPROLOL
  41. DIPHENHYDRAMINE [Concomitant]
     Active Substance: DIPHENHYDRAMINE
     Indication: Product used for unknown indication
  42. DIPHENHYDRAMINE [Concomitant]
     Active Substance: DIPHENHYDRAMINE
     Route: 065
  43. DIPHENHYDRAMINE [Concomitant]
     Active Substance: DIPHENHYDRAMINE
     Route: 065
  44. DIPHENHYDRAMINE [Concomitant]
     Active Substance: DIPHENHYDRAMINE
  45. NALOXONE [Concomitant]
     Active Substance: NALOXONE
     Indication: Product used for unknown indication
  46. NALOXONE [Concomitant]
     Active Substance: NALOXONE
     Route: 065
  47. NALOXONE [Concomitant]
     Active Substance: NALOXONE
     Route: 065
  48. NALOXONE [Concomitant]
     Active Substance: NALOXONE

REACTIONS (4)
  - Toxicity to various agents [Fatal]
  - Overdose [Fatal]
  - Postmortem blood drug level abnormal [Fatal]
  - Antemortem blood drug level abnormal [Fatal]
